FAERS Safety Report 5551549-X (Version None)
Quarter: 2007Q4

REPORT INFORMATION
  Report Type: 
  Country: None (occurrence: None)
  Receive Date: 20071212
  Receipt Date: 20071130
  Transmission Date: 20080405
  Serious: Yes (Death)
  Sender: FDA-Public Use
  Company Number: FR-SANOFI-SYNTHELABO-A02200703198

PATIENT
  Age: 93 Year
  Sex: Female

DRUGS (1)
  1. STILNOX [Suspect]
     Indication: DRUG USE FOR UNKNOWN INDICATION
     Route: 048
     Dates: start: 20071019

REACTIONS (6)
  - BALANCE DISORDER [None]
  - CARDIAC ARREST [None]
  - CONFUSIONAL STATE [None]
  - EYE DISORDER [None]
  - FALL [None]
  - MALAISE [None]
